FAERS Safety Report 7379033-1 (Version None)
Quarter: 2011Q1

REPORT INFORMATION
  Report Type: 
  Country: None (occurrence: None)
  Receive Date: 20110328
  Receipt Date: 20110318
  Transmission Date: 20110831
  Serious: Yes (Other)
  Sender: FDA-Public Use
  Company Number: NL-MEDIMMUNE-MEDI-0012962

PATIENT
  Sex: Female
  Weight: 7.6 kg

DRUGS (1)
  1. SYNAGIS [Suspect]
     Route: 030
     Dates: start: 20100914, end: 20110301

REACTIONS (3)
  - EYE MOVEMENT DISORDER [None]
  - CRYING [None]
  - ALTERED STATE OF CONSCIOUSNESS [None]
